FAERS Safety Report 24823633 (Version 2)
Quarter: 2025Q1

REPORT INFORMATION
  Report Type: Report from Study
  Country: US (occurrence: US)
  Receive Date: 20250109
  Receipt Date: 20250110
  Transmission Date: 20250409
  Serious: No
  Sender: ACADIA PHARMACEUTICALS
  Company Number: US-ACADIA PHARMACEUTICALS INC.-ACA-2025-PIM-000212

PATIENT
  Sex: Male

DRUGS (4)
  1. NUPLAZID [Suspect]
     Active Substance: PIMAVANSERIN TARTRATE
     Indication: Parkinson^s disease psychosis
     Dosage: 34 MILLIGRAM, QD
     Route: 048
     Dates: start: 20240912
  2. DONEPEZIL [Concomitant]
     Active Substance: DONEPEZIL
  3. MEGESTROL ACETATE [Concomitant]
     Active Substance: MEGESTROL ACETATE
  4. MEMANTINE [Concomitant]
     Active Substance: MEMANTINE

REACTIONS (2)
  - Psychotic disorder [Not Recovered/Not Resolved]
  - Dysstasia [Not Recovered/Not Resolved]
